FAERS Safety Report 7483184-0 (Version None)
Quarter: 2011Q2

REPORT INFORMATION
  Report Type: 
  Country: None (occurrence: None)
  Receive Date: 20110516
  Receipt Date: 20110504
  Transmission Date: 20111010
  Serious: Yes (Death)
  Sender: FDA-Public Use
  Company Number: IT-RB-000746-08

PATIENT
  Sex: Male

DRUGS (3)
  1. SUBUTEX [Suspect]
     Dates: start: 20060818, end: 20060918
  2. SUBUTEX [Suspect]
     Indication: PRODUCT USED FOR UNKNOWN INDICATION
     Dates: end: 20071128
  3. CLOPIXOL DEPOT [Concomitant]
     Indication: PRODUCT USED FOR UNKNOWN INDICATION
     Dosage: DOSE UNKNOWN
     Dates: end: 20070601

REACTIONS (4)
  - PSYCHOMOTOR HYPERACTIVITY [None]
  - VOMITING [None]
  - COMA [None]
  - RESTLESSNESS [None]
